FAERS Safety Report 8543284-0 (Version None)
Quarter: 2012Q2

REPORT INFORMATION
  Report Type: 
  Country: None (occurrence: None)
  Receive Date: 20120412
  Receipt Date: 20090413
  Transmission Date: 20120825
  Serious: Yes (Other)
  Sender: FDA-Public Use
  Company Number: PHEH2006US01632

PATIENT
  Age: 67 Year
  Sex: Male
  Weight: 91.2 kg

DRUGS (10)
  1. ZOMETA [Suspect]
     Indication: MULTIPLE MYELOMA
     Dosage: 4 MG MONTHLY, INTRAVENOUS ; 3.5 MG MONTHLY
     Route: 042
     Dates: start: 20031103, end: 20051010
  2. ZOMETA [Suspect]
     Indication: MULTIPLE MYELOMA
     Dosage: 4 MG MONTHLY, INTRAVENOUS ; 3.5 MG MONTHLY
     Route: 042
     Dates: start: 20031101, end: 20050901
  3. THALIDOMIDE [Concomitant]
  4. PLAVIX [Concomitant]
  5. ZANTAC [Concomitant]
  6. AREDIA [Suspect]
     Indication: MULTIPLE MYELOMA
     Dosage: 90 MG MONTHLY, INTRAVENOUS
     Route: 042
     Dates: start: 20020201, end: 20031006
  7. LORTAB [Concomitant]
  8. OS-CAL (CALCIUM, ERGOCALCIFEROL) [Concomitant]
  9. MELPHALAN HYDROCHLORIDE [Concomitant]
  10. GLYBURIDE [Concomitant]

REACTIONS (23)
  - SOFT TISSUE DISORDER [None]
  - WOUND HAEMORRHAGE [None]
  - BIOPSY [None]
  - PAIN [None]
  - BONE EROSION [None]
  - CALCIFICATION METASTATIC [None]
  - METASTASES TO SPINE [None]
  - INFECTION [None]
  - OEDEMA MUCOSAL [None]
  - ANXIETY [None]
  - DECREASED INTEREST [None]
  - ERYTHEMA [None]
  - ARTHRALGIA [None]
  - DENTAL OPERATION [None]
  - WOUND DRAINAGE [None]
  - COMPRESSION FRACTURE [None]
  - OSTEOLYSIS [None]
  - NECK MASS [None]
  - OSTEONECROSIS [None]
  - BONE DISORDER [None]
  - LYMPHADENOPATHY [None]
  - TOOTH EXTRACTION [None]
  - DEBRIDEMENT [None]
